FAERS Safety Report 10942710 (Version 2)
Quarter: 2015Q2

REPORT INFORMATION
  Report Type: Spontaneous
  Country: US (occurrence: US)
  Receive Date: 20150322
  Receipt Date: 20150524
  Transmission Date: 20150821
  Serious: No
  Sender: FDA-Public Use
  Company Number: US-JNJFOC-20130507330

PATIENT
  Sex: Male

DRUGS (10)
  1. METFORMIN [Concomitant]
     Active Substance: METFORMIN HYDROCHLORIDE
  2. VICTOZA [Concomitant]
     Active Substance: LIRAGLUTIDE
  3. INSULIN [Concomitant]
     Active Substance: INSULIN NOS
  4. GLIMEPIRIDE. [Concomitant]
     Active Substance: GLIMEPIRIDE
  5. LISINOPRIL. [Concomitant]
     Active Substance: LISINOPRIL
  6. INVOKANA [Suspect]
     Active Substance: CANAGLIFLOZIN
     Indication: TYPE 2 DIABETES MELLITUS
     Route: 048
  7. AMOXICILLIN. [Concomitant]
     Active Substance: AMOXICILLIN
  8. INVOKANA [Suspect]
     Active Substance: CANAGLIFLOZIN
     Indication: TYPE 2 DIABETES MELLITUS
     Route: 048
  9. JANUMET [Concomitant]
     Active Substance: METFORMIN HYDROCHLORIDE\SITAGLIPTIN PHOSPHATE
  10. HYDROCODONE/ACETAMINOPHEN [Concomitant]
     Active Substance: ACETAMINOPHEN\HYDROCODONE

REACTIONS (1)
  - Rash [Unknown]
